FAERS Safety Report 23997479 (Version 2)
Quarter: 2024Q3

REPORT INFORMATION
  Report Type: Spontaneous
  Country: US (occurrence: US)
  Receive Date: 20240621
  Receipt Date: 20240920
  Transmission Date: 20241017
  Serious: No
  Sender: BRAEBURN PHARMACEUTICALS
  Company Number: US-BRAEBURN-US-BRA-24-000396

PATIENT
  Sex: Female

DRUGS (4)
  1. BRIXADI [Suspect]
     Active Substance: BUPRENORPHINE
     Indication: Drug use disorder
     Dosage: 16 MILLIGRAM, WEEKLY
     Route: 058
     Dates: start: 20240213
  2. BRIXADI [Suspect]
     Active Substance: BUPRENORPHINE
     Dosage: 24 MILLIGRAM, WEEKLY
     Route: 058
  3. BRIXADI [Suspect]
     Active Substance: BUPRENORPHINE
     Dosage: 64 MILLIGRAM, MONTHLY
     Route: 058
  4. BRIXADI [Suspect]
     Active Substance: BUPRENORPHINE
     Dosage: 96 MILLIGRAM, MONTHLY, ONE SYRINGE SUBCUTANEOUS EVERY 4 WEEKS
     Route: 058

REACTIONS (1)
  - Irritability [Recovered/Resolved]
